FAERS Safety Report 9865857 (Version 2)
Quarter: 2014Q2

REPORT INFORMATION
  Report Type: Report from Study
  Country: AU (occurrence: AU)
  Receive Date: 20140203
  Receipt Date: 20140506
  Transmission Date: 20141212
  Serious: Yes (Death, Other)
  Sender: FDA-Public Use
  Company Number: PHHY2014AU012106

PATIENT
  Age: 81 Year
  Sex: Male

DRUGS (4)
  1. ACLASTA [Suspect]
     Dosage: 5 MG, UNK
     Route: 042
     Dates: start: 20130202
  2. CEPHALEXIN [Concomitant]
     Indication: INFECTION
     Dosage: 500 MG, QID
     Route: 048
     Dates: start: 20131024
  3. PARIET [Concomitant]
     Indication: GASTROOESOPHAGEAL REFLUX DISEASE
     Dosage: 20 MG, UNK
     Route: 048
     Dates: start: 20131024
  4. WARFARIN [Concomitant]
     Indication: ATRIAL FIBRILLATION
     Dosage: VARIABLE

REACTIONS (9)
  - Cardiac failure [Fatal]
  - Hypertension [Fatal]
  - Confusional state [Unknown]
  - General physical health deterioration [Unknown]
  - Liver function test abnormal [Unknown]
  - Syncope [Unknown]
  - Somnolence [Unknown]
  - Headache [Unknown]
  - Fatigue [Unknown]
